FAERS Safety Report 4508509-7 (Version None)
Quarter: 2004Q4

REPORT INFORMATION
  Report Type: 
  Country: None (occurrence: None)
  Receive Date: 20041123
  Receipt Date: 20040311
  Transmission Date: 20050328
  Serious: Yes (Other)
  Sender: FDA-Public Use
  Company Number: US-GLAXOSMITHKLINE-A0502373A

PATIENT
  Age: 45 Year
  Sex: Male
  Weight: 68.2 kg

DRUGS (3)
  1. WELLBUTRIN [Suspect]
     Indication: DEPRESSION
     Dosage: 150MG TWICE PER DAY
     Route: 048
     Dates: start: 20040106, end: 20040310
  2. ALCOHOL [Suspect]
  3. ZOLOFT [Concomitant]
     Indication: DEPRESSION
     Dosage: 200MG PER DAY
     Dates: start: 20030331

REACTIONS (2)
  - AMNESIA [None]
  - GRAND MAL CONVULSION [None]
